FAERS Safety Report 11904468 (Version 1)
Quarter: 2016Q1

REPORT INFORMATION
  Report Type: Spontaneous
  Country: US (occurrence: US)
  Receive Date: 20160108
  Receipt Date: 20160108
  Transmission Date: 20160526
  Serious: Yes (Hospitalization)
  Sender: FDA-Public Use
  Company Number: US-ROCHE-1630361

PATIENT
  Age: 63 Year
  Sex: Female
  Weight: 99.1 kg

DRUGS (9)
  1. VANCOMYCIN [Concomitant]
     Active Substance: VANCOMYCIN
     Route: 048
     Dates: start: 20150820, end: 20150826
  2. RITUXAN [Suspect]
     Active Substance: RITUXIMAB
     Dosage: DAILY X1
     Route: 042
     Dates: start: 20150819, end: 20150819
  3. VALTREX [Concomitant]
     Active Substance: VALACYCLOVIR HYDROCHLORIDE
     Indication: PROPHYLAXIS
     Route: 048
     Dates: start: 2014
  4. PENTOSTATIN. [Suspect]
     Active Substance: PENTOSTATIN
     Dosage: ONE TIME DOSE?10 MG/VIAL 2 MG/ML
     Route: 042
     Dates: start: 20150819, end: 20150819
  5. FLUOXETINE [Concomitant]
     Active Substance: FLUOXETINE HYDROCHLORIDE
     Indication: OBSESSIVE-COMPULSIVE DISORDER
     Route: 048
     Dates: start: 2014
  6. RITUXAN [Suspect]
     Active Substance: RITUXIMAB
     Indication: HAIRY CELL LEUKAEMIA
     Dosage: ONE TIME DOSE?500 MG VIALS, 10MG/ML
     Route: 042
     Dates: start: 20150805, end: 20150805
  7. PENTOSTATIN. [Suspect]
     Active Substance: PENTOSTATIN
     Indication: HAIRY CELL LEUKAEMIA
     Dosage: ONE TIME DOSE?10 MG/VIAL 2 MG/ML
     Route: 042
     Dates: start: 20150805, end: 20150805
  8. CLONAZEPAM. [Concomitant]
     Active Substance: CLONAZEPAM
     Indication: ANXIETY
     Route: 048
     Dates: start: 2014
  9. FILGRASTIM [Concomitant]
     Active Substance: FILGRASTIM
     Indication: NEUTROPENIA
     Dosage: EVERY OTHER DAY
     Route: 058
     Dates: start: 201508

REACTIONS (3)
  - Enterocolitis infectious [Recovered/Resolved]
  - Pneumonia [Unknown]
  - Diverticulitis [Recovering/Resolving]

NARRATIVE: CASE EVENT DATE: 20150812
